FAERS Safety Report 18523173 (Version 3)
Quarter: 2020Q4

REPORT INFORMATION
  Report Type: Report from Study
  Country: DE (occurrence: DE)
  Receive Date: 20201119
  Receipt Date: 20201230
  Transmission Date: 20210114
  Serious: Yes (Hospitalization)
  Sender: FDA-Public Use
  Company Number: DE-TAKEDA-2020TUS049171

PATIENT
  Age: 32 Year
  Sex: Female

DRUGS (8)
  1. TEDUGLUTIDE [Suspect]
     Active Substance: TEDUGLUTIDE
     Indication: SHORT-BOWEL SYNDROME
     Dosage: 2.2 MILLIGRAM (0.036 MG/KG, 7 TED DOSES PER WEEK)
     Route: 058
     Dates: start: 20200511
  2. TEDUGLUTIDE [Suspect]
     Active Substance: TEDUGLUTIDE
     Indication: SHORT-BOWEL SYNDROME
     Dosage: 2.2 MILLIGRAM (0.036 MG/KG, 7 TED DOSES PER WEEK)
     Route: 058
     Dates: start: 20200511
  3. FERINJECT [Concomitant]
     Active Substance: FERRIC CARBOXYMALTOSE
     Indication: SHORT-BOWEL SYNDROME
     Dosage: 1000 MILLIGRAM
     Route: 042
     Dates: start: 2015
  4. NOVALGIN (METAMIZOLE SODIUM) [Concomitant]
     Active Substance: METAMIZOLE SODIUM
     Indication: SHORT-BOWEL SYNDROME
     Dosage: 1 (NO UNITS)
     Route: 048
  5. VITAMIN B12 [Concomitant]
     Active Substance: CYANOCOBALAMIN
     Indication: SHORT-BOWEL SYNDROME
     Dosage: 1 (NO UNITS), MONTHLY
     Route: 030
     Dates: start: 2017
  6. DEKRISTOL [Concomitant]
     Active Substance: CHOLECALCIFEROL
     Indication: SHORT-BOWEL SYNDROME
     Dosage: 20000 IU INTERNATIONAL UNIT(S), 2/WEEK
     Route: 048
  7. TEDUGLUTIDE [Suspect]
     Active Substance: TEDUGLUTIDE
     Indication: SHORT-BOWEL SYNDROME
     Dosage: 2.2 MILLIGRAM (0.036 MG/KG, 7 TED DOSES PER WEEK)
     Route: 058
     Dates: start: 20200511
  8. TEDUGLUTIDE [Suspect]
     Active Substance: TEDUGLUTIDE
     Indication: SHORT-BOWEL SYNDROME
     Dosage: 2.2 MILLIGRAM (0.036 MG/KG, 7 TED DOSES PER WEEK)
     Route: 058
     Dates: start: 20200511

REACTIONS (1)
  - Device related infection [Recovered/Resolved]

NARRATIVE: CASE EVENT DATE: 20201103
